FAERS Safety Report 4457807-4 (Version None)
Quarter: 2004Q3

REPORT INFORMATION
  Report Type: 
  Country: None (occurrence: None)
  Receive Date: 20040917
  Receipt Date: 20040715
  Transmission Date: 20050211
  Serious: Yes (Hospitalization)
  Sender: FDA-Public Use
  Company Number: US-JNJFOC-20040704554

PATIENT
  Age: 46 Year
  Sex: Female

DRUGS (5)
  1. TOPAMAX [Suspect]
     Indication: HEADACHE
     Dosage: 200 MG, IN 1 DAY, ORAL
     Route: 048
     Dates: start: 20030123
  2. AUGMENTIN '125' [Concomitant]
  3. PREVACID [Concomitant]
  4. FE SULFATE (FERROUS SULFATE) [Concomitant]
  5. NORVASC [Concomitant]

REACTIONS (1)
  - ANAEMIA [None]
